FAERS Safety Report 7632529-7 (Version None)
Quarter: 2011Q3

REPORT INFORMATION
  Report Type: 
  Country: None (occurrence: None)
  Receive Date: 20110725
  Receipt Date: 20101014
  Transmission Date: 20111222
  Serious: No
  Sender: FDA-Public Use
  Company Number: US-BRISTOL-MYERS SQUIBB COMPANY-15313976

PATIENT
  Sex: Male

DRUGS (2)
  1. COUMADIN [Suspect]
  2. SOYBEAN [Suspect]
     Dosage: SHELLED SOYBEANS (EDAMAME).

REACTIONS (3)
  - PROTHROMBIN TIME SHORTENED [None]
  - SINUSITIS [None]
  - TOOTHACHE [None]
